FAERS Safety Report 20209690 (Version 2)
Quarter: 2022Q4

REPORT INFORMATION
  Report Type: Spontaneous
  Country: DE (occurrence: DE)
  Receive Date: 20211221
  Receipt Date: 20221026
  Transmission Date: 20230113
  Serious: Yes (Hospitalization)
  Sender: FDA-Public Use
  Company Number: None

PATIENT
  Age: 48 Year
  Sex: Female

DRUGS (10)
  1. RANITIDINE HYDROCHLORIDE [Concomitant]
     Active Substance: RANITIDINE HYDROCHLORIDE
     Indication: Product used for unknown indication
     Dosage: 300 MG, QD (1-0-0-0)
     Route: 048
  2. TIOTROPIUM BROMIDE [Concomitant]
     Active Substance: TIOTROPIUM BROMIDE
     Indication: Product used for unknown indication
     Dosage: 1-0-0-0 (METERED DOSE INHALER)
     Route: 055
  3. LIRAGLUTIDE [Suspect]
     Active Substance: LIRAGLUTIDE
     Indication: Product used for unknown indication
     Dosage: 0.6 MG, QD (1-0-0-0)
     Route: 058
  4. DIACEREIN [Concomitant]
     Active Substance: DIACEREIN
     Indication: Product used for unknown indication
     Dosage: 1-0-0-0 (METERED DOSE INHALER)
     Route: 055
  5. METFORMIN [Concomitant]
     Active Substance: METFORMIN HYDROCHLORIDE
     Indication: Product used for unknown indication
     Dosage: 1000 MG, BID(1-0-1-0)
     Route: 048
  6. EFEROX [Concomitant]
     Active Substance: LEVOTHYROXINE SODIUM
     Indication: Product used for unknown indication
     Dosage: 75 MG, QD
     Route: 048
  7. HYALURONATE SODIUM [Concomitant]
     Active Substance: HYALURONATE SODIUM
     Indication: Product used for unknown indication
     Dosage: TROPFEN
     Route: 031
  8. SALBUTAMOL AL [Concomitant]
     Indication: Product used for unknown indication
     Dosage: UNK (IF NEEDED, METERED DOSE INHALER)
     Route: 055
  9. VALSARTAN [Concomitant]
     Active Substance: VALSARTAN
     Indication: Product used for unknown indication
     Dosage: 160 MG, QD
     Route: 048
  10. TRESIBA [Concomitant]
     Active Substance: INSULIN DEGLUDEC
     Indication: Product used for unknown indication
     Dosage: 20 IE, 0-0-0-1
     Route: 058

REACTIONS (4)
  - Decreased appetite [Unknown]
  - Abdominal pain upper [Unknown]
  - Abdominal pain [Unknown]
  - Gastritis [Unknown]
